FAERS Safety Report 18145679 (Version 1)
Quarter: 2020Q3

REPORT INFORMATION
  Report Type: Spontaneous
  Country: JP (occurrence: JP)
  Receive Date: 20200813
  Receipt Date: 20200813
  Transmission Date: 20201103
  Serious: Yes (Hospitalization)
  Sender: FDA-Public Use
  Company Number: JP-TEVA-2020-JP-1815003

PATIENT
  Age: 69 Year
  Sex: Male

DRUGS (8)
  1. FOLINIC?ACID [Concomitant]
     Active Substance: LEUCOVORIN
     Indication: COLON CANCER
     Dosage: FOLFOX REGIMEN
     Route: 065
  2. BEVACIZUMAB. [Concomitant]
     Active Substance: BEVACIZUMAB
     Indication: METASTASES TO LIVER
  3. OXALIPLATIN. [Suspect]
     Active Substance: OXALIPLATIN
     Indication: COLON CANCER
     Dosage: FOLFOX REGIMEN
     Route: 065
  4. OXALIPLATIN. [Suspect]
     Active Substance: OXALIPLATIN
     Indication: METASTASES TO LIVER
  5. 5?FU [Concomitant]
     Active Substance: FLUOROURACIL
     Indication: COLON CANCER
     Dosage: FOLFOX REGIMEN
     Route: 065
  6. 5?FU [Concomitant]
     Active Substance: FLUOROURACIL
     Indication: METASTASES TO LIVER
  7. BEVACIZUMAB. [Concomitant]
     Active Substance: BEVACIZUMAB
     Indication: COLON CANCER
     Route: 065
  8. FOLINIC?ACID [Concomitant]
     Active Substance: LEUCOVORIN
     Indication: METASTASES TO LIVER

REACTIONS (7)
  - Arteriovenous fistula [Recovered/Resolved]
  - Ascites [Recovered/Resolved]
  - Mesenteric vein thrombosis [Recovered/Resolved]
  - Liver disorder [Recovered/Resolved]
  - Portal hypertension [Recovered/Resolved]
  - Liver injury [Recovered/Resolved]
  - Portal shunt [Recovered/Resolved]
